FAERS Safety Report 6058139-3 (Version None)
Quarter: 2009Q1

REPORT INFORMATION
  Report Type: 
  Country: None (occurrence: None)
  Receive Date: 20090127
  Receipt Date: 20090113
  Transmission Date: 20090719
  Serious: Yes (Hospitalization)
  Sender: FDA-Public Use
  Company Number: PHHY2009DE01553

PATIENT
  Age: 56 Year
  Sex: Male

DRUGS (3)
  1. CO-DIOVAN (VALSARTAN, HYDROCHLOROTHIAZIDE) TABLET, 160/12.5MG [Suspect]
     Indication: HYPERTENSION
     Dosage: 1 DF (160/12.5 MG), QD, ORAL
     Route: 048
     Dates: start: 20080210
  2. CARVEDILOL [Suspect]
     Dosage: 12.5 MG, 2DF/DAY, ORAL
     Route: 048
     Dates: start: 20080430
  3. ASS ^HEXAL^ (ACETYLSALICYLIC ACID) TABLET [Concomitant]

REACTIONS (3)
  - HYPERHIDROSIS [None]
  - MALAISE [None]
  - PAIN IN EXTREMITY [None]
